FAERS Safety Report 6366347-7 (Version None)
Quarter: 2009Q3

REPORT INFORMATION
  Report Type: 
  Country: None (occurrence: None)
  Receive Date: 20090915
  Receipt Date: 20090909
  Transmission Date: 20100115
  Serious: Yes (Life-Threatening, Hospitalization)
  Sender: FDA-Public Use
  Company Number: JHP200900269

PATIENT
  Age: 24 Year
  Sex: Female

DRUGS (1)
  1. EPINEPHRINE [Suspect]
     Indication: ANAPHYLACTIC REACTION
     Dosage: 5 MG, , INTRAMUSCULAR
     Route: 030

REACTIONS (10)
  - BLOOD PRESSURE INCREASED [None]
  - EJECTION FRACTION DECREASED [None]
  - ELECTROCARDIOGRAM ST SEGMENT DEPRESSION [None]
  - INCORRECT DOSE ADMINISTERED [None]
  - NAUSEA [None]
  - SHOCK [None]
  - SINUS TACHYCARDIA [None]
  - STRESS CARDIOMYOPATHY [None]
  - TREMOR [None]
  - VOMITING [None]
